FAERS Safety Report 10207022 (Version 1)
Quarter: 2014Q2

REPORT INFORMATION
  Report Type: Spontaneous
  Country: US (occurrence: None)
  Receive Date: 20140527
  Receipt Date: 20140527
  Transmission Date: 20141212
  Serious: Yes (Hospitalization)
  Sender: FDA-Public Use
  Company Number: None

PATIENT
  Age: 67 Year
  Sex: Female

DRUGS (7)
  1. LIDOCAINE [Suspect]
     Indication: SURGERY
     Dosage: 1% 10CC ONCE INTRANASAL
     Dates: start: 20120606, end: 20120606
  2. LEVOTHYROXINE [Concomitant]
  3. LOSARTAN [Concomitant]
  4. HYDROCHLOROTHIAZIDE [Concomitant]
  5. AMLODIPINE [Concomitant]
  6. NISOLDIPINE [Concomitant]
  7. SIMVASTATIN [Concomitant]

REACTIONS (1)
  - Hypertension [None]
